FAERS Safety Report 8318705 (Version 2)
Quarter: 2013Q1

REPORT INFORMATION
  Report Type: Spontaneous
  Country: US (occurrence: US)
  Receive Date: 20120103
  Receipt Date: 20130226
  Transmission Date: 20140127
  Serious: Yes (Life-Threatening, Congenital Anomaly, Other)
  Sender: FDA-Public Use
  Company Number: US-PFIZER INC-2011289540

PATIENT
  Sex: Male
  Weight: 2.3 kg

DRUGS (2)
  1. ZOLOFT [Suspect]
     Dosage: UNK
     Route: 064
     Dates: start: 2001
  2. PRIMACARE [Concomitant]
     Dosage: UNK
     Route: 064

REACTIONS (5)
  - Maternal exposure timing unspecified [Unknown]
  - Cleft palate [Unknown]
  - Congenital anomaly [Unknown]
  - Premature baby [Unknown]
  - Low birth weight baby [Unknown]
